FAERS Safety Report 25566666 (Version 4)
Quarter: 2025Q3

REPORT INFORMATION
  Report Type: Spontaneous
  Country: US (occurrence: US)
  Receive Date: 20250716
  Receipt Date: 20250829
  Transmission Date: 20251020
  Serious: Yes (Other)
  Sender: SANOFI AVENTIS
  Company Number: US-SANOFI-02589458

PATIENT
  Age: 76 Year
  Sex: Male

DRUGS (2)
  1. DUPIXENT [Suspect]
     Active Substance: DUPILUMAB
     Indication: Pemphigoid
     Dosage: 300 MG, QOW
     Dates: start: 20250707
  2. PREDNISONE [Concomitant]
     Active Substance: PREDNISONE

REACTIONS (16)
  - Neuropathy peripheral [Unknown]
  - Oral mucosal blistering [Unknown]
  - Condition aggravated [Unknown]
  - Eye discharge [Unknown]
  - Swelling [Unknown]
  - Musculoskeletal stiffness [Unknown]
  - Skin wrinkling [Recovered/Resolved]
  - Peripheral swelling [Unknown]
  - Erythema [Unknown]
  - Pruritus [Unknown]
  - Swelling of eyelid [Unknown]
  - Neck pain [Unknown]
  - Pain in extremity [Unknown]
  - Swelling face [Unknown]
  - Condition aggravated [Unknown]
  - Dry eye [Unknown]

NARRATIVE: CASE EVENT DATE: 20250101
